FAERS Safety Report 22312271 (Version 2)
Quarter: 2023Q2

REPORT INFORMATION
  Report Type: Other
  Country: PT (occurrence: PT)
  Receive Date: 20230512
  Receipt Date: 20230530
  Transmission Date: 20230722
  Serious: Yes (Death, Other)
  Sender: FDA-Public Use
  Company Number: PT-CELLTRION INC.-2023PT009685

PATIENT

DRUGS (9)
  1. RITUXIMAB [Suspect]
     Active Substance: RITUXIMAB
     Indication: Acute lymphocytic leukaemia
     Dosage: START DATE: JUN-2020, COMBINED WITH 2ND LINE-HIPER-CVAD REGIMEN
     Route: 065
     Dates: start: 202006
  2. CYTARABINE [Suspect]
     Active Substance: CYTARABINE
     Indication: Hyperleukocytosis
     Dosage: START DATE: 2020 (1 GR)
     Route: 065
     Dates: start: 2020
  3. INOTUZUMAB OZOGAMICIN [Suspect]
     Active Substance: INOTUZUMAB OZOGAMICIN
     Indication: Acute lymphocytic leukaemia
     Dosage: START DATE: SEP-2020, STOP DATE: OCT-2020, 1 X CYCLICAL
     Route: 065
     Dates: start: 202009, end: 202010
  4. INOTUZUMAB OZOGAMICIN [Suspect]
     Active Substance: INOTUZUMAB OZOGAMICIN
     Dosage: START DATE: OCT-2020 (INCOMPLETE BECAUSE OF INFECTION)
     Route: 065
  5. CYCLOPHOSPHAMIDE [Suspect]
     Active Substance: CYCLOPHOSPHAMIDE
     Indication: Acute lymphocytic leukaemia
     Dosage: START DATE: JUN-2020, AS A PART OF 2ND LINE-HIPER-CVAD REGIMEN
     Route: 065
     Dates: start: 202006
  6. DEXAMETHASONE [Suspect]
     Active Substance: DEXAMETHASONE
     Indication: Acute lymphocytic leukaemia
     Dosage: START DATE: JUN-2020, AS A PART OF 2ND LINE-HIPER-CVAD REGIMEN
     Route: 065
     Dates: start: 202006
  7. VINCRISTINE SULFATE [Suspect]
     Active Substance: VINCRISTINE SULFATE
     Indication: Acute lymphocytic leukaemia
     Dosage: START DATE: JUN-2020, AS A PART OF 2ND LINE-HIPER-CVAD REGIMEN
     Route: 065
     Dates: start: 202006
  8. ADRIAMYCIN [Suspect]
     Active Substance: DOXORUBICIN HYDROCHLORIDE
     Indication: Acute lymphocytic leukaemia
     Dosage: START DATE: JUN-2020, AS A PART OF 2ND LINE-HIPER-CVAD REGIMEN
     Route: 065
     Dates: start: 202006
  9. DEXTROMETHORPHAN [Suspect]
     Active Substance: DEXTROMETHORPHAN
     Indication: Hyperleukocytosis
     Dosage: START DATE:2020
     Route: 065

REACTIONS (10)
  - COVID-19 [Fatal]
  - Cellulitis [Fatal]
  - Pneumonia necrotising [Fatal]
  - Sepsis [Fatal]
  - Corynebacterium infection [Fatal]
  - Hyperleukocytosis [Unknown]
  - Subdural haematoma [Unknown]
  - Febrile neutropenia [Unknown]
  - Neutropenia [Unknown]
  - Off label use [Unknown]

NARRATIVE: CASE EVENT DATE: 20200101
